FAERS Safety Report 9119189 (Version 1)
Quarter: 2013Q1

REPORT INFORMATION
  Report Type: Spontaneous
  Country: DK (occurrence: None)
  Receive Date: 20130130
  Receipt Date: 20130130
  Transmission Date: 20140127
  Serious: Yes (Disabling)
  Sender: FDA-Public Use
  Company Number: DK-SEPTODONT-200500748

PATIENT
  Age: 38 Year
  Sex: Female

DRUGS (2)
  1. SEPTANEST (ARTICAINE HCL 4% AND EPINEPHRINE) [Suspect]
     Indication: LOCAL ANAESTHESIA
     Dosage: 1.7 ML OF THE 40 MG/ML + 5 UL/ML SOLUTION FOR INJECTION (ARTICAINE HYDROCHLORIDE)
     Dates: start: 20040129
  2. XYLOCAINE 2% WITH EPINEPHRINE 1:100,000 INJECTION (LIDOCAINE HYDROCHLORIDE; EPINEPHRINE BITARTRATE) [Concomitant]

REACTIONS (5)
  - Facial pain [None]
  - Hypoaesthesia oral [None]
  - Oral pain [None]
  - Injection site pain [None]
  - Injection site anaesthesia [None]
